FAERS Safety Report 7440759-2 (Version None)
Quarter: 2011Q2

REPORT INFORMATION
  Report Type: 
  Country: None (occurrence: None)
  Receive Date: 20110427
  Receipt Date: 20110418
  Transmission Date: 20111010
  Serious: Yes (Hospitalization)
  Sender: FDA-Public Use
  Company Number: DE-ASTRAZENECA-2011SE22665

PATIENT
  Sex: Female

DRUGS (1)
  1. ATACAND [Suspect]
     Route: 048
     Dates: start: 20100401

REACTIONS (4)
  - MOVEMENT DISORDER [None]
  - PAIN IN EXTREMITY [None]
  - BURSITIS [None]
  - VERTIGO [None]
